FAERS Safety Report 24800379 (Version 2)
Quarter: 2025Q1

REPORT INFORMATION
  Report Type: Spontaneous
  Country: US (occurrence: US)
  Receive Date: 20250102
  Receipt Date: 20250103
  Transmission Date: 20250409
  Serious: Yes (Other)
  Sender: PFIZER
  Company Number: US-PFIZER INC-PV202400169314

PATIENT
  Age: 35 Year
  Sex: Male

DRUGS (5)
  1. TESTOSTERONE CYPIONATE [Suspect]
     Active Substance: TESTOSTERONE CYPIONATE
     Indication: Supplementation therapy
  2. DIETARY SUPPLEMENT\UBIDECARENONE [Concomitant]
     Active Substance: DIETARY SUPPLEMENT\UBIDECARENONE
  3. DIETARY SUPPLEMENT\HERBALS\MILK THISTLE [Concomitant]
     Active Substance: MILK THISTLE
  4. BURDOCK ROOT [Concomitant]
  5. DANDELION [Concomitant]
     Active Substance: TARAXACUM OFFICINALE POLLEN

REACTIONS (1)
  - Drug-induced liver injury [Recovering/Resolving]
